FAERS Safety Report 6196844-9 (Version None)
Quarter: 2009Q2

REPORT INFORMATION
  Report Type: 
  Country: None (occurrence: None)
  Receive Date: 20090520
  Receipt Date: 20090514
  Transmission Date: 20091009
  Serious: Yes (Death, Other)
  Sender: FDA-Public Use
  Company Number: JP-WYE-H08847509

PATIENT
  Sex: Male

DRUGS (17)
  1. ANCARON [Suspect]
     Indication: ARRHYTHMIA
     Route: 048
     Dates: start: 20041001, end: 20090401
  2. MUCOSOLVAN [Concomitant]
     Route: 048
  3. SELBEX [Concomitant]
     Route: 048
  4. SIGMART [Concomitant]
     Route: 048
  5. LACTOBACILLUS BIFIDUS, LYOPHILIZED [Concomitant]
     Route: 048
  6. PANALDINE [Concomitant]
     Route: 048
  7. ALLEGRA [Concomitant]
     Route: 048
  8. ASPIRIN [Concomitant]
     Route: 048
  9. NYCLIN [Concomitant]
     Route: 048
  10. CYANOCOBALAMIN [Concomitant]
     Route: 048
  11. TAKEPRON [Concomitant]
     Route: 048
  12. THYRADIN [Concomitant]
     Route: 048
  13. DIAZEPAM [Concomitant]
     Route: 048
  14. BENZALIN [Concomitant]
     Route: 048
  15. METLIGINE [Concomitant]
     Route: 048
  16. PURSENNID [Concomitant]
     Dosage: ^6^
     Route: 048
  17. BISOLVON [Concomitant]
     Route: 048

REACTIONS (2)
  - INTERSTITIAL LUNG DISEASE [None]
  - RESPIRATORY FAILURE [None]
